FAERS Safety Report 6093980-2 (Version None)
Quarter: 2009Q1

REPORT INFORMATION
  Report Type: 
  Country: None (occurrence: None)
  Receive Date: 20090226
  Receipt Date: 20090224
  Transmission Date: 20090719
  Serious: Yes (Other)
  Sender: FDA-Public Use
  Company Number: B0535793A

PATIENT
  Age: 79 Year
  Sex: Female

DRUGS (10)
  1. PAXIL [Suspect]
     Indication: DEPRESSION
     Route: 048
     Dates: start: 20060621, end: 20080202
  2. BENZALIN [Suspect]
     Indication: INSOMNIA
     Route: 048
     Dates: start: 20060621, end: 20081209
  3. SEDIEL [Suspect]
     Indication: ANXIETY
     Dosage: 10MG THREE TIMES PER DAY
     Route: 048
     Dates: start: 20070315, end: 20070915
  4. WYPAX [Suspect]
     Indication: ANXIETY
     Dosage: 1MG TWICE PER DAY
     Route: 048
     Dates: start: 20060621, end: 20060811
  5. GOODMIN [Concomitant]
     Indication: INSOMNIA
     Dosage: .25MG PER DAY
     Route: 048
     Dates: start: 20060621
  6. LUVOX [Concomitant]
     Indication: DEPRESSION
     Dosage: 100MG PER DAY
     Route: 048
     Dates: start: 20060531, end: 20060625
  7. AMLODIN [Concomitant]
     Indication: HYPERTENSION
     Dosage: 5MG PER DAY
     Dates: start: 20070705
  8. EPADEL S [Concomitant]
     Dosage: 1800MG PER DAY
     Dates: start: 20070705, end: 20081209
  9. UNKNOWN DRUG [Concomitant]
     Indication: CONSTIPATION
     Dosage: 12MG PER DAY
     Dates: start: 20070705, end: 20080722
  10. LOCHOL [Concomitant]
     Dosage: 20MG PER DAY
     Dates: start: 20080107, end: 20081209

REACTIONS (13)
  - ALTERED STATE OF CONSCIOUSNESS [None]
  - ANGER [None]
  - ANXIETY [None]
  - BED REST [None]
  - COGNITIVE DISORDER [None]
  - DELIRIUM [None]
  - DEPRESSED MOOD [None]
  - DIZZINESS [None]
  - DRUG INEFFECTIVE [None]
  - ELECTROENCEPHALOGRAM ABNORMAL [None]
  - INSOMNIA [None]
  - IRRITABILITY [None]
  - MEMORY IMPAIRMENT [None]
